FAERS Safety Report 13940908 (Version 14)
Quarter: 2018Q2

REPORT INFORMATION
  Report Type: Report from Study
  Country: None (occurrence: NL)
  Receive Date: 20170906
  Receipt Date: 20180402
  Transmission Date: 20180711
  Serious: Yes (Hospitalization)
  Sender: FDA-Public Use
  Company Number: NL-ABBVIE-17K-114-2086009-00

PATIENT
  Age: 72 Year
  Sex: Female
  Weight: 57 kg

DRUGS (7)
  1. DUODOPA [Suspect]
     Active Substance: CARBIDOPA\LEVODOPA
     Dosage: MD:3.5ML , CD:4.0ML AND ED: 3.2ML.
     Route: 050
  2. DUODOPA [Suspect]
     Active Substance: CARBIDOPA\LEVODOPA
     Dosage: MD 4, CD 4.1, ED 3.2, CND 3.3, END 1.7
     Route: 050
  3. DUODOPA [Suspect]
     Active Substance: CARBIDOPA\LEVODOPA
     Dosage: CONTINUOUS DOSE INCREASED WITH 0.1 ML TO 4.1 ML
     Route: 050
  4. DUODOPA [Suspect]
     Active Substance: CARBIDOPA\LEVODOPA
     Dosage: MD 4.5 ML, CD 4.1 ML
     Route: 050
  5. SYMMETREL [Concomitant]
     Active Substance: AMANTADINE HYDROCHLORIDE
     Indication: PRODUCT USED FOR UNKNOWN INDICATION
  6. DUODOPA [Suspect]
     Active Substance: CARBIDOPA\LEVODOPA
     Dosage: MD DECREASED TO 2.5ML, CD 4.0ML AND ED 3.2ML
     Route: 050
  7. DUODOPA [Suspect]
     Active Substance: CARBIDOPA\LEVODOPA
     Indication: PARKINSON^S DISEASE
     Dosage: MD: 4.0, CD: 4.3, ED: 3.0, CND: 3.3, END: 1.7
     Route: 050
     Dates: start: 20150401

REACTIONS (23)
  - Pneumonia [Unknown]
  - Malaise [Recovering/Resolving]
  - Weight decreased [Recovered/Resolved]
  - Influenza [Unknown]
  - Musculoskeletal stiffness [Not Recovered/Not Resolved]
  - Tremor [Not Recovered/Not Resolved]
  - Hyperkinesia [Not Recovered/Not Resolved]
  - Pleural effusion [Recovering/Resolving]
  - Musculoskeletal stiffness [Recovering/Resolving]
  - Ventricular dysfunction [Not Recovered/Not Resolved]
  - Incorrect dose administered [Unknown]
  - Dyskinesia [Not Recovered/Not Resolved]
  - Grimacing [Not Recovered/Not Resolved]
  - Hyperkinesia [Recovering/Resolving]
  - Dyskinesia [Recovered/Resolved]
  - On and off phenomenon [Not Recovered/Not Resolved]
  - Pulmonary oedema [Recovering/Resolving]
  - Pain in extremity [Not Recovered/Not Resolved]
  - Urinary incontinence [Unknown]
  - Muscle rigidity [Not Recovered/Not Resolved]
  - Device used for unapproved schedule [Unknown]
  - Fatigue [Unknown]
  - Fall [Unknown]

NARRATIVE: CASE EVENT DATE: 201707
